FAERS Safety Report 21613188 (Version 5)
Quarter: 2022Q4

REPORT INFORMATION
  Report Type: Spontaneous
  Country: US (occurrence: US)
  Receive Date: 20221118
  Receipt Date: 20221228
  Transmission Date: 20230112
  Serious: No
  Sender: FDA-Public Use
  Company Number: US-PFIZER INC-PV202200103725

PATIENT
  Age: 28 Year
  Sex: Male

DRUGS (2)
  1. GENOTROPIN [Suspect]
     Active Substance: SOMATROPIN
     Dosage: UNK, DAILY
  2. GENOTROPIN [Suspect]
     Active Substance: SOMATROPIN
     Dosage: 6 MG [DOSAGE: 6MG]

REACTIONS (3)
  - Product dose omission issue [Unknown]
  - Poor quality product administered [Unknown]
  - Liquid product physical issue [Unknown]
